FAERS Safety Report 7599515-7 (Version None)
Quarter: 2011Q3

REPORT INFORMATION
  Report Type: 
  Country: None (occurrence: None)
  Receive Date: 20110711
  Receipt Date: 20110627
  Transmission Date: 20111222
  Serious: Yes (Other)
  Sender: FDA-Public Use
  Company Number: US-BAYER-2011-027298

PATIENT
  Age: 40 Year
  Sex: Female

DRUGS (3)
  1. MIRENA [Suspect]
     Indication: CONTRACEPTION
     Dosage: 20 ?G, CONT
     Route: 015
     Dates: start: 20110310, end: 20110324
  2. MIRENA [Suspect]
     Indication: ABDOMINAL PAIN
  3. MIRENA [Suspect]
     Indication: MENORRHAGIA

REACTIONS (10)
  - FEELING HOT [None]
  - ERYTHEMA [None]
  - DIZZINESS [None]
  - PROCEDURAL DIZZINESS [None]
  - EMOTIONAL DISTRESS [None]
  - FLUSHING [None]
  - PALPITATIONS [None]
  - PROCEDURAL PAIN [None]
  - FEELING ABNORMAL [None]
  - PRESYNCOPE [None]
